FAERS Safety Report 18627118 (Version 2)
Quarter: 2021Q1

REPORT INFORMATION
  Report Type: Report from Study
  Country: US (occurrence: US)
  Receive Date: 20201217
  Receipt Date: 20210130
  Transmission Date: 20210419
  Serious: Yes (Hospitalization, Other)
  Sender: FDA-Public Use
  Company Number: NVSC2020US329603

PATIENT

DRUGS (2)
  1. COSENTYX [Suspect]
     Active Substance: SECUKINUMAB
     Indication: PSORIASIS
     Dosage: 300 MG, QW (FOR 4 WEEKS)
     Route: 058
     Dates: start: 20200812
  2. COSENTYX [Suspect]
     Active Substance: SECUKINUMAB
     Indication: PSORIATIC ARTHROPATHY
     Dosage: 300 MG, Q4W
     Route: 058

REACTIONS (5)
  - Visual impairment [Recovered/Resolved]
  - Eye disorder [Recovered/Resolved]
  - Artery dissection [Recovered/Resolved]
  - Clavicle fracture [Recovered/Resolved]
  - Cerebrovascular accident [Recovered/Resolved]
